FAERS Safety Report 18622399 (Version 5)
Quarter: 2021Q1

REPORT INFORMATION
  Report Type: Spontaneous
  Country: US (occurrence: US)
  Receive Date: 20201216
  Receipt Date: 20210125
  Transmission Date: 20210419
  Serious: No
  Sender: FDA-Public Use
  Company Number: US-PFIZER INC-2020494823

PATIENT
  Age: 75 Year
  Sex: Male
  Weight: 104.31 kg

DRUGS (4)
  1. MAGNESIUM [Concomitant]
     Active Substance: MAGNESIUM
     Dosage: UNK
  2. IBRANCE [Suspect]
     Active Substance: PALBOCICLIB
     Indication: GASTRIC CANCER
     Dosage: 100 MG, CYCLIC (1 DAILY FOR 14 DAYS, 7 OFF)
     Route: 048
     Dates: start: 202012
  3. TRAMADOL HCL [Concomitant]
     Active Substance: TRAMADOL HYDROCHLORIDE
     Dosage: 50 MG
  4. IRON [Concomitant]
     Active Substance: IRON
     Dosage: UNK (159 (45) MG TABLET ER)

REACTIONS (7)
  - Influenza [Unknown]
  - Nasal dryness [Unknown]
  - Lacrimation increased [Unknown]
  - Eye pruritus [Unknown]
  - Illness [Unknown]
  - Rhinorrhoea [Unknown]
  - Off label use [Unknown]
